FAERS Safety Report 18329115 (Version 1)
Quarter: 2020Q3

REPORT INFORMATION
  Report Type: Spontaneous
  Country: AU (occurrence: AU)
  Receive Date: 20200930
  Receipt Date: 20200930
  Transmission Date: 20201103
  Serious: Yes (Life-Threatening, Hospitalization, Other)
  Sender: FDA-Public Use
  Company Number: AU-ACCORD-203242

PATIENT
  Age: 32 Year
  Sex: Male

DRUGS (2)
  1. LEVETIRACETAM. [Suspect]
     Active Substance: LEVETIRACETAM
     Indication: SEIZURE PROPHYLAXIS
     Dosage: LOADING DOSE
  2. LEVETIRACETAM. [Suspect]
     Active Substance: LEVETIRACETAM
     Indication: SEIZURE PROPHYLAXIS

REACTIONS (2)
  - Myelosuppression [Recovered/Resolved]
  - Pancytopenia [Recovered/Resolved]
